FAERS Safety Report 9449773 (Version 1)
Quarter: 2013Q3

REPORT INFORMATION
  Report Type: Spontaneous
  Country: FR (occurrence: FR)
  Receive Date: 20130809
  Receipt Date: 20130809
  Transmission Date: 20140515
  Serious: Yes (Death)
  Sender: FDA-Public Use
  Company Number: FR-ROCHE-1258791

PATIENT
  Age: 54 Year
  Sex: Male

DRUGS (12)
  1. XELODA [Suspect]
     Indication: RECTAL NEOPLASM
     Route: 048
     Dates: start: 20130619, end: 20130702
  2. XATRAL [Concomitant]
  3. INEXIUM [Concomitant]
  4. NOCTAMIDE [Concomitant]
  5. LYRICA [Concomitant]
  6. XANAX [Concomitant]
  7. PERMIXON [Concomitant]
  8. SMECTA (FRANCE) [Concomitant]
  9. DIFFU K [Concomitant]
  10. IMODIUM [Concomitant]
  11. LANTUS [Concomitant]
  12. RIVOTRIL [Concomitant]
     Route: 065

REACTIONS (1)
  - Bone marrow failure [Fatal]
